FAERS Safety Report 8693089 (Version 2)
Quarter: 2012Q4

REPORT INFORMATION
  Report Type: 
  Country: NZ (occurrence: NZ)
  Receive Date: 20120730
  Receipt Date: 20120911
  Transmission Date: 20130627
  Serious: Yes (Other)
  Sender: FDA-Public Use
  Company Number: PHHY2012NZ049948

PATIENT
  Age: 47 Year
  Sex: Female

DRUGS (4)
  1. CLOZARIL [Suspect]
     Indication: SCHIZOAFFECTIVE DISORDER BIPOLAR TYPE
     Dosage: 325 mg, UNK
     Route: 048
     Dates: start: 20110310, end: 20120604
  2. LAMOTRIGINE [Concomitant]
     Indication: AFFECTIVE DISORDER
     Dosage: 200 mg, QHS
     Route: 048
     Dates: start: 20111114
  3. ZOPICLONE [Concomitant]
     Indication: INSOMNIA
     Dosage: 7.5 mg, QHS
     Route: 048
  4. VENLAFAXINE [Concomitant]
     Indication: DEPRESSION
     Dosage: 225 mg, QHS
     Route: 048
     Dates: start: 20091215

REACTIONS (5)
  - Hallucination, auditory [Recovering/Resolving]
  - Diabetes mellitus inadequate control [Recovering/Resolving]
  - Glycosylated haemoglobin increased [Recovering/Resolving]
  - Blood glucose increased [Recovering/Resolving]
  - Weight increased [Recovering/Resolving]
